FAERS Safety Report 9056345 (Version 3)
Quarter: 2014Q1

REPORT INFORMATION
  Report Type: Spontaneous
  Country: JP (occurrence: JP)
  Receive Date: 20130204
  Receipt Date: 20140214
  Transmission Date: 20141002
  Serious: Yes (Other)
  Sender: FDA-Public Use
  Company Number: JP-MERCK-1301JPN014350

PATIENT
  Age: 70 Year
  Sex: Female

DRUGS (14)
  1. REFLEX [Suspect]
     Indication: DEPRESSION
     Dosage: DIVIDED DOSE FREQUENCY UNKNOWN
     Route: 048
     Dates: start: 20120402, end: 20120419
  2. REFLEX [Suspect]
     Indication: STUPOR
  3. PROPOFOL [Suspect]
     Indication: ANAESTHESIA PROCEDURE
     Dosage: DAILY DOSE UNKNOWN
     Route: 042
  4. PHENYTOIN [Suspect]
     Dosage: 250 MG,DIVIDED DOSE FREQUENCY UNKNOWN
     Route: 048
  5. AMOXAPINE [Concomitant]
     Dosage: 150 MG, QD
     Route: 048
  6. AMOXAPINE [Concomitant]
     Dosage: UNK
     Route: 048
  7. QUETIAPINE FUMARATE [Concomitant]
     Dosage: 500 MG, QD
     Route: 048
  8. QUETIAPINE FUMARATE [Concomitant]
     Dosage: UNK
     Route: 048
  9. SULPIRIDE [Concomitant]
     Dosage: 150 MG, QD
  10. SULPIRIDE [Concomitant]
     Dosage: UNK
     Route: 048
  11. RISPERIDONE [Concomitant]
     Dosage: 2 MG, QD
     Route: 065
  12. PALIPERIDONE [Concomitant]
     Dosage: UNK
     Route: 048
  13. PALIPERIDONE [Concomitant]
     Dosage: 9 MG, QD
     Route: 048
  14. PALIPERIDONE [Concomitant]
     Dosage: 6 MG, QD
     Route: 048

REACTIONS (6)
  - Suicide attempt [Recovering/Resolving]
  - Hepatic function abnormal [Recovering/Resolving]
  - Constipation [Unknown]
  - Volvulus [Recovering/Resolving]
  - Stupor [Recovering/Resolving]
  - Drug ineffective [Unknown]
